FAERS Safety Report 11244643 (Version 1)
Quarter: 2015Q3

REPORT INFORMATION
  Report Type: Spontaneous
  Country: US (occurrence: US)
  Receive Date: 20150707
  Receipt Date: 20150707
  Transmission Date: 20151125
  Serious: No
  Sender: FDA-Public Use
  Company Number: US-PFIZER INC-2015221058

PATIENT
  Age: 62 Year
  Sex: Male
  Weight: 137 kg

DRUGS (4)
  1. LISINOPRIL. [Concomitant]
     Active Substance: LISINOPRIL
     Indication: BLOOD PRESSURE MEASUREMENT
     Dosage: UNK
  2. ASPIRINE [Concomitant]
     Active Substance: ASPIRIN
     Dosage: 81 MG, UNK
  3. ADVIL [Suspect]
     Active Substance: IBUPROFEN
     Indication: PAIN IN EXTREMITY
     Dosage: 600 MG, DAILY
     Route: 048
     Dates: start: 201506, end: 201506
  4. ADVIL [Suspect]
     Active Substance: IBUPROFEN
     Indication: BACK PAIN

REACTIONS (1)
  - Drug ineffective [Not Recovered/Not Resolved]
